FAERS Safety Report 19906496 (Version 1)
Quarter: 2021Q3

REPORT INFORMATION
  Report Type: Spontaneous
  Country: US (occurrence: US)
  Receive Date: 20210930
  Receipt Date: 20210930
  Transmission Date: 20211014
  Serious: Yes (Death)
  Sender: FDA-Public Use
  Company Number: None

PATIENT
  Age: 92 Year
  Sex: Female

DRUGS (1)
  1. REVLIMID [Suspect]
     Active Substance: LENALIDOMIDE
     Indication: PLASMA CELL MYELOMA
     Route: 048
     Dates: start: 20201217, end: 20210829

REACTIONS (4)
  - Cardiac arrest [None]
  - COVID-19 pneumonia [None]
  - Confusional state [None]
  - Hypoxia [None]

NARRATIVE: CASE EVENT DATE: 20210829
